FAERS Safety Report 14733971 (Version 1)
Quarter: 2018Q2

REPORT INFORMATION
  Report Type: Spontaneous
  Country: US (occurrence: US)
  Receive Date: 20180403
  Receipt Date: 20180403
  Transmission Date: 20180711
  Serious: Yes (Hospitalization)
  Sender: FDA-Public Use
  Company Number: None

PATIENT
  Age: 5 Year
  Sex: Male

DRUGS (17)
  1. NUTROPIN [Suspect]
     Active Substance: SOMATROPIN
     Indication: CHRONIC KIDNEY DISEASE
     Route: 058
     Dates: start: 20171207
  2. CALCITRIOL. [Concomitant]
     Active Substance: CALCITRIOL
  3. SOLIRIS [Concomitant]
     Active Substance: ECULIZUMAB
  4. CHOLESTYRAM [Concomitant]
     Active Substance: CHOLESTYRAMINE
  5. PENICILLN VK [Concomitant]
  6. VITAMIN D3 [Concomitant]
     Active Substance: CHOLECALCIFEROL
  7. LOSARTAN POT [Concomitant]
     Active Substance: LOSARTAN POTASSIUM
  8. LISINOPRIL. [Concomitant]
     Active Substance: LISINOPRIL
  9. SODIUM CHLOR [Concomitant]
     Active Substance: SODIUM CHLORIDE
  10. CYTRA-2 [Concomitant]
     Active Substance: CITRIC ACID MONOHYDRATE\TRISODIUM CITRATE DIHYDRATE
  11. DOXAZOSIN [Concomitant]
     Active Substance: DOXAZOSIN\DOXAZOSIN MESYLATE
  12. AMLODIPINE BESYLATE. [Concomitant]
     Active Substance: AMLODIPINE BESYLATE
  13. PREVACID [Concomitant]
     Active Substance: LANSOPRAZOLE
  14. WARFARIN [Concomitant]
     Active Substance: WARFARIN
  15. ZANTAC [Concomitant]
     Active Substance: RANITIDINE HYDROCHLORIDE
  16. FERROUS SULF [Concomitant]
     Active Substance: FERROUS SULFATE
  17. ASPIRIN. [Concomitant]
     Active Substance: ASPIRIN

REACTIONS (2)
  - Therapy cessation [None]
  - Hospitalisation [None]

NARRATIVE: CASE EVENT DATE: 20180115
